FAERS Safety Report 8243784-7 (Version None)
Quarter: 2012Q1

REPORT INFORMATION
  Report Type: 
  Country: None (occurrence: None)
  Receive Date: 20120329
  Receipt Date: 20111209
  Transmission Date: 20120608
  Serious: No
  Sender: FDA-Public Use
  Company Number: US-MYLANLABS-2011S1022623

PATIENT
  Age: 69 Year
  Sex: Female

DRUGS (3)
  1. EMSAM [Suspect]
     Indication: DEPRESSION
     Dosage: ONLY LEAVES PATCHES ON FOR 9 HOURS
     Route: 062
     Dates: start: 20110802
  2. ESTRADERM [Concomitant]
     Dosage: EXPERIENCES NO APPLICATION SITE REACTIONS WITH THIS PATCH
     Route: 062
     Dates: start: 19930101
  3. VALIUM [Concomitant]
     Indication: DEPRESSION

REACTIONS (8)
  - INSOMNIA [None]
  - APPLICATION SITE PAIN [None]
  - APPLICATION SITE VESICLES [None]
  - INAPPROPRIATE SCHEDULE OF DRUG ADMINISTRATION [None]
  - APPLICATION SITE IRRITATION [None]
  - APPLICATION SITE ERYTHEMA [None]
  - APPLICATION SITE PRURITUS [None]
  - DRUG ADMINISTERED AT INAPPROPRIATE SITE [None]
